FAERS Safety Report 12492954 (Version 1)
Quarter: 2016Q2

REPORT INFORMATION
  Report Type: Spontaneous
  Country: US (occurrence: US)
  Receive Date: 20160623
  Receipt Date: 20160623
  Transmission Date: 20160815
  Serious: Yes (Hospitalization)
  Sender: FDA-Public Use
  Company Number: US-ACTELION-A-US2016-138098

PATIENT
  Age: 8 Month
  Sex: Female

DRUGS (1)
  1. TRACLEER [Suspect]
     Active Substance: BOSENTAN
     Indication: PULMONARY HYPERTENSION
     Dosage: UNK
     Route: 048

REACTIONS (3)
  - Aspartate aminotransferase increased [Unknown]
  - Pulmonary hypertension [Unknown]
  - Liver function test increased [Unknown]

NARRATIVE: CASE EVENT DATE: 20160504
